FAERS Safety Report 15472968 (Version 2)
Quarter: 2022Q2

REPORT INFORMATION
  Report Type: Spontaneous
  Country: US (occurrence: US)
  Receive Date: 20181008
  Receipt Date: 20220415
  Transmission Date: 20220721
  Serious: No
  Sender: FDA-Public Use
  Company Number: US-PFIZER INC-2018400177

PATIENT
  Age: 34 Year
  Sex: Female

DRUGS (9)
  1. IBRANCE [Suspect]
     Active Substance: PALBOCICLIB
     Indication: Breast cancer female
     Dosage: 125 MG, CYCLIC (1 CAPSULE ONCE DAILY FOR 21 DAYS ON AND 7 DAYS OFF)
     Route: 048
     Dates: start: 201802
  2. IBRANCE [Suspect]
     Active Substance: PALBOCICLIB
     Dosage: 125 MG, CYCLIC (ONCE DAILY ON DAYS 1 TO 21 OF A 28 DAY. 3 WEEKS ON AND 1 WEEK)
     Route: 048
  3. CLONIDINE HYDROCHLORIDE [Concomitant]
     Active Substance: CLONIDINE HYDROCHLORIDE
     Dosage: UNK
  4. LETROZOLE [Concomitant]
     Active Substance: LETROZOLE
     Dosage: UNK
  5. IBUPROFEN [Concomitant]
     Active Substance: IBUPROFEN
     Dosage: UNK
  6. PANTOPRAZOLE SODIUM [Concomitant]
     Active Substance: PANTOPRAZOLE SODIUM
     Dosage: UNK
  7. LABETALOL HYDROCHLORIDE [Concomitant]
     Active Substance: LABETALOL HYDROCHLORIDE
     Dosage: UNK
  8. ASPIRIN [Concomitant]
     Active Substance: ASPIRIN
     Dosage: UNK
  9. BENAZEPRIL HYDROCHLORIDE [Concomitant]
     Active Substance: BENAZEPRIL HYDROCHLORIDE
     Dosage: UNK

REACTIONS (3)
  - Dry skin [Unknown]
  - Skin exfoliation [Unknown]
  - Product dose omission issue [Unknown]
